FAERS Safety Report 10635184 (Version 3)
Quarter: 2015Q3

REPORT INFORMATION
  Report Type: Spontaneous
  Country: JP (occurrence: JP)
  Receive Date: 20141205
  Receipt Date: 20150709
  Transmission Date: 20151125
  Serious: Yes (Other)
  Sender: FDA-Public Use
  Company Number: JP-ASTRAZENECA-2014SE89969

PATIENT
  Age: 73 Year
  Sex: Female

DRUGS (2)
  1. XYLOCAINE [Suspect]
     Active Substance: LIDOCAINE HYDROCHLORIDE
     Indication: INFILTRATION ANAESTHESIA
     Route: 053
  2. MARCAIN [Suspect]
     Active Substance: BUPIVACAINE HYDROCHLORIDE
     Indication: LOCAL ANAESTHESIA
     Route: 053

REACTIONS (9)
  - Eye movement disorder [Unknown]
  - Sinus arrest [Unknown]
  - Bradycardia [Unknown]
  - Coma [Unknown]
  - Vomiting [Unknown]
  - Pallor [Unknown]
  - Sinus node dysfunction [Unknown]
  - Electrocardiogram ST segment depression [Unknown]
  - Loss of consciousness [Unknown]
